FAERS Safety Report 4661698-6 (Version None)
Quarter: 2005Q2

REPORT INFORMATION
  Report Type: 
  Country: None (occurrence: None)
  Receive Date: 20050511
  Receipt Date: 20050511
  Transmission Date: 20051028
  Serious: Yes (Hospitalization)
  Sender: FDA-Public Use
  Company Number: None

PATIENT
  Age: 81 Year
  Sex: Male

DRUGS (1)
  1. WARFARIN [Suspect]
     Dosage: 2.5 MG QD EXCEPT 5 MG ON MONDAYS
     Dates: start: 20001001

REACTIONS (1)
  - INTERNATIONAL NORMALISED RATIO INCREASED [None]
